FAERS Safety Report 21068504 (Version 1)
Quarter: 2022Q3

REPORT INFORMATION
  Report Type: Spontaneous
  Country: US (occurrence: None)
  Receive Date: 20220711
  Receipt Date: 20220711
  Transmission Date: 20221026
  Serious: Yes (Death, Hospitalization)
  Sender: FDA-Public Use
  Company Number: None

PATIENT
  Age: 65 Year
  Sex: Female

DRUGS (1)
  1. TECARTUS [Suspect]
     Active Substance: BREXUCABTAGENE AUTOLEUCEL
     Indication: Mantle cell lymphoma
     Dates: start: 20220414, end: 20220414

REACTIONS (7)
  - Neurotoxicity [None]
  - Tremor [None]
  - Delirium [None]
  - Encephalopathy [None]
  - Headache [None]
  - Dizziness [None]
  - Cytokine release syndrome [None]

NARRATIVE: CASE EVENT DATE: 20220417
